FAERS Safety Report 16270585 (Version 2)
Quarter: 2019Q3

REPORT INFORMATION
  Report Type: Spontaneous
  Country: US (occurrence: US)
  Receive Date: 20190503
  Receipt Date: 20190822
  Transmission Date: 20191004
  Serious: Yes (Other)
  Sender: FDA-Public Use
  Company Number: US-VERTEX PHARMACEUTICALS-2019-003779

PATIENT
  Age: 2 Year
  Sex: Female

DRUGS (7)
  1. D-VI-SOL [Concomitant]
     Dosage: 400/ ML DROPS
  2. LACTULOSE. [Concomitant]
     Active Substance: LACTULOSE
     Indication: CONSTIPATION
     Dosage: UNK, PRN
  3. ORKAMBI [Suspect]
     Active Substance: IVACAFTOR\LUMACAFTOR
     Indication: CYSTIC FIBROSIS
     Dosage: 100/125 MG GRANULES, BID
     Route: 048
  4. ZANTAC [Concomitant]
     Active Substance: RANITIDINE HYDROCHLORIDE
  5. PULMOZYME [Concomitant]
     Active Substance: DORNASE ALFA
     Dosage: 2.5 MG, DAILY
     Route: 055
  6. AQUADEKS                           /07679501/ [Concomitant]
     Active Substance: MINERALS\VITAMINS
     Dosage: UNK
  7. CREON [Concomitant]
     Active Substance: PANCRELIPASE AMYLASE\PANCRELIPASE LIPASE\PANCRELIPASE PROTEASE

REACTIONS (2)
  - Pharyngitis streptococcal [Not Recovered/Not Resolved]
  - Dyspnoea [Recovered/Resolved]

NARRATIVE: CASE EVENT DATE: 2019
